FAERS Safety Report 7010783 (Version 2)
Quarter: 2018Q2

REPORT INFORMATION
  Report Type: Spontaneous
  Country: JP (occurrence: JP)
  Receive Date: 20090604
  Receipt Date: 20180612
  Transmission Date: 20180711
  Serious: Yes (Other)
  Sender: FDA-Public Use
  Company Number: JP-BAYER-200910806BYL

PATIENT
  Age: 43 Year
  Sex: Female
  Weight: 50 kg

DRUGS (8)
  1. MIRENA [Suspect]
     Active Substance: LEVONORGESTREL
     Indication: ENDOMETRIAL HYPERPLASIA
     Dosage: 20 MCG/24HR, CONT
     Route: 015
     Dates: start: 20070706, end: 20080804
  2. LANIRAPID [Concomitant]
     Active Substance: METILDIGOXIN
     Indication: ATRIAL FIBRILLATION
     Route: 048
     Dates: start: 20070301, end: 20070801
  3. BAYASPIRIN 100 MG [Concomitant]
     Active Substance: ASPIRIN
     Indication: THROMBOSIS PROPHYLAXIS
     Route: 048
     Dates: start: 20070301, end: 20071231
  4. LOXONIN [Concomitant]
     Active Substance: LOXOPROFEN SODIUM
     Indication: PAIN
     Route: 048
     Dates: start: 20070706, end: 20070706
  5. MIRENA [Suspect]
     Active Substance: LEVONORGESTREL
     Indication: MENORRHAGIA
  6. FLOMOX [Concomitant]
     Active Substance: CEFCAPENE PIVOXIL HYDROCHLORIDE HYDRATE
     Indication: INFECTION PROPHYLAXIS
     Route: 048
     Dates: start: 20070706, end: 20070707
  7. BAYASPIRIN 100 MG [Concomitant]
     Active Substance: ASPIRIN
     Indication: ARRHYTHMIA
  8. FRANDOL [Concomitant]
     Active Substance: ISOSORBIDE DINITRATE

REACTIONS (5)
  - Menstruation irregular [None]
  - Endometriosis [Recovering/Resolving]
  - Metrorrhagia [Recovering/Resolving]
  - Endometriosis [Recovered/Resolved with Sequelae]
  - Hypomenorrhoea [None]

NARRATIVE: CASE EVENT DATE: 20070706
